FAERS Safety Report 19437044 (Version 1)
Quarter: 2021Q2

REPORT INFORMATION
  Report Type: Spontaneous
  Country: CN (occurrence: CN)
  Receive Date: 20210618
  Receipt Date: 20210618
  Transmission Date: 20210717
  Serious: Yes (Other)
  Sender: FDA-Public Use
  Company Number: CN-PFIZER INC-2021658821

PATIENT
  Age: 58 Year
  Sex: Male
  Weight: 72 kg

DRUGS (4)
  1. SULPERASON [Concomitant]
     Active Substance: CEFOPERAZONE\SULBACTAM
     Indication: SKIN ULCER
     Dosage: 3 G, 3X/DAY
     Route: 041
     Dates: start: 20210519, end: 20210524
  2. ASPIRIN [ACETYLSALICYLIC ACID] [Concomitant]
     Active Substance: ASPIRIN
     Indication: DIABETES MELLITUS
     Dosage: 0.1 G, 1X/DAY
     Route: 048
     Dates: start: 20210519, end: 20210531
  3. INSULIN [Concomitant]
     Active Substance: INSULIN NOS
     Indication: DIABETES MELLITUS
     Dosage: 100.000 IU, 1X/DAY (VIA PUMP INJECTION)
     Dates: start: 20210519, end: 20210528
  4. LINEZOLID. [Suspect]
     Active Substance: LINEZOLID
     Indication: SKIN ULCER
     Dosage: 0.6 G, 2X/DAY
     Route: 041
     Dates: start: 20210519, end: 20210524

REACTIONS (8)
  - Tachyarrhythmia [Recovered/Resolved]
  - Heart rate increased [Recovered/Resolved]
  - Supraventricular tachycardia [Recovered/Resolved]
  - Extrasystoles [Recovered/Resolved]
  - Dyspnoea [Recovered/Resolved]
  - Chest discomfort [Recovered/Resolved]
  - Blood pressure decreased [Recovered/Resolved]
  - Electrocardiogram ST segment abnormal [Recovered/Resolved]

NARRATIVE: CASE EVENT DATE: 20210523
